FAERS Safety Report 22004621 (Version 3)
Quarter: 2023Q1

REPORT INFORMATION
  Report Type: Spontaneous
  Country: DE (occurrence: DE)
  Receive Date: 20230217
  Receipt Date: 20230331
  Transmission Date: 20230418
  Serious: Yes (Hospitalization)
  Sender: FDA-Public Use
  Company Number: DE-JNJFOC-20230200590

PATIENT
  Age: 84 Year
  Sex: Male
  Weight: 87 kg

DRUGS (34)
  1. DEXAMETHASONE [Suspect]
     Active Substance: DEXAMETHASONE
     Indication: Plasma cell myeloma
     Dosage: 20 MG (CYCLE 1)
     Route: 048
     Dates: start: 20221206
  2. DEXAMETHASONE [Suspect]
     Active Substance: DEXAMETHASONE
     Dosage: 20 MG (CYCLE 1)
     Route: 048
     Dates: start: 20221213
  3. DEXAMETHASONE [Suspect]
     Active Substance: DEXAMETHASONE
     Dosage: 20 MG (CYCLE 1)
     Route: 048
     Dates: start: 20221220
  4. DEXAMETHASONE [Suspect]
     Active Substance: DEXAMETHASONE
     Dosage: 20 MG (CYCLE 1)
     Route: 048
     Dates: start: 20221227
  5. DEXAMETHASONE [Suspect]
     Active Substance: DEXAMETHASONE
     Dosage: 20 MG (CYCLE 2)
     Route: 048
     Dates: start: 20230103
  6. DEXAMETHASONE [Suspect]
     Active Substance: DEXAMETHASONE
     Dosage: 20 MG (CYCLE 2)
     Route: 048
     Dates: start: 20230110
  7. DEXAMETHASONE [Suspect]
     Active Substance: DEXAMETHASONE
     Dosage: 20 MG (CYCLE 2)
     Route: 048
     Dates: start: 20230117
  8. DEXAMETHASONE [Suspect]
     Active Substance: DEXAMETHASONE
     Dosage: 20 MG (CYCLE 2)
     Route: 048
     Dates: start: 20230124
  9. DEXAMETHASONE [Suspect]
     Active Substance: DEXAMETHASONE
     Dosage: 20 MG (CYCLE 3)
     Route: 048
     Dates: start: 20230214
  10. DEXAMETHASONE [Suspect]
     Active Substance: DEXAMETHASONE
     Dosage: 20 MG (CYCLE 3)
     Route: 048
     Dates: start: 20230220
  11. DEXAMETHASONE [Suspect]
     Active Substance: DEXAMETHASONE
     Dosage: 20 MG (CYCLE 3)
     Route: 048
     Dates: start: 20230228
  12. DEXAMETHASONE [Suspect]
     Active Substance: DEXAMETHASONE
     Dosage: 20 MG (CYCLE 3)
     Route: 048
     Dates: start: 20230307
  13. LENALIDOMIDE [Suspect]
     Active Substance: LENALIDOMIDE
     Indication: Plasma cell myeloma
     Dosage: 15 MG (CYCLE 1)
     Route: 048
     Dates: start: 20221206
  14. LENALIDOMIDE [Suspect]
     Active Substance: LENALIDOMIDE
     Dosage: 10 MG (CYCLE 2)
     Route: 048
     Dates: start: 20230118, end: 20230124
  15. DARZALEX [Suspect]
     Active Substance: DARATUMUMAB
     Indication: Plasma cell myeloma
     Dosage: 1800 MG, QW (CYCLE 1)
     Route: 058
     Dates: start: 20221206
  16. DARZALEX [Suspect]
     Active Substance: DARATUMUMAB
     Dosage: 1800, MG  (CYCLE 1)
     Route: 058
     Dates: start: 20221213
  17. DARZALEX [Suspect]
     Active Substance: DARATUMUMAB
     Dosage: 1800 MG (CYCLE 1)
     Route: 058
     Dates: start: 20221220
  18. DARZALEX [Suspect]
     Active Substance: DARATUMUMAB
     Dosage: 1800 MG (CYCLE 1)
     Route: 058
     Dates: start: 20221227
  19. DARZALEX [Suspect]
     Active Substance: DARATUMUMAB
     Dosage: 1800 MG (CYCLE 2)
     Route: 058
     Dates: start: 20230103
  20. DARZALEX [Suspect]
     Active Substance: DARATUMUMAB
     Dosage: 1800 MG (CYCLE 2)
     Route: 058
     Dates: start: 20230110
  21. DARZALEX [Suspect]
     Active Substance: DARATUMUMAB
     Dosage: 1800 MG (CYCLE 2)
     Route: 058
     Dates: start: 20230117
  22. DARZALEX [Suspect]
     Active Substance: DARATUMUMAB
     Dosage: 1800 MG (CYCLE 2)
     Route: 058
     Dates: start: 20230124
  23. DARZALEX [Suspect]
     Active Substance: DARATUMUMAB
     Dosage: 1800 MG (CYCLE 3)
     Route: 058
     Dates: start: 20230214
  24. DARZALEX [Suspect]
     Active Substance: DARATUMUMAB
     Dosage: 1800 MG (CYCLE 3)
     Route: 058
     Dates: start: 20230228
  25. ALLOPURINOL [Concomitant]
     Active Substance: ALLOPURINOL
     Indication: Hyperuricaemia
     Dosage: 100 MG, QD
     Route: 048
  26. ROSUVASTATIN [Concomitant]
     Active Substance: ROSUVASTATIN
     Indication: Hypercholesterolaemia
     Dosage: 5 MG, QD
     Route: 048
     Dates: end: 20230103
  27. ASPIRIN [Concomitant]
     Active Substance: ASPIRIN
     Indication: Ischaemic cardiomyopathy
     Dosage: 100 MG, QD
     Route: 048
     Dates: start: 201808
  28. PREDNISOLONE [Concomitant]
     Active Substance: PREDNISOLONE
     Indication: Prophylaxis
     Dosage: 100 MG, PRN, PM (AS NEEDED)
     Route: 042
     Dates: start: 20221206
  29. CLEMASTINE [Concomitant]
     Active Substance: CLEMASTINE
     Indication: Prophylaxis
     Dosage: 2 MG, PRN PM (AS NEEDED)
     Route: 042
     Dates: start: 20221206
  30. CYANOCOBALAMIN [Concomitant]
     Active Substance: CYANOCOBALAMIN
     Indication: Anaemia vitamin B12 deficiency
     Dosage: 1000 UG, PRN, PM (AS NEEDED)
     Route: 042
     Dates: start: 20220929
  31. EZETIMIBE [Concomitant]
     Active Substance: EZETIMIBE
     Indication: Hypercholesterolaemia
     Dosage: 10 MG, QD
     Route: 048
     Dates: start: 201808, end: 20230103
  32. EPLERENONE [Concomitant]
     Active Substance: EPLERENONE
     Indication: Ischaemic cardiomyopathy
     Dosage: 12.5 MG, QD
     Route: 048
     Dates: start: 201808
  33. NEBIVOLOL [Concomitant]
     Active Substance: NEBIVOLOL
     Indication: Hypertension
     Dosage: 1.25 MG, QD
     Route: 048
     Dates: start: 202111
  34. ALBUTEROL [Concomitant]
     Active Substance: ALBUTEROL
     Indication: Prophylaxis
     Dosage: UNK
     Route: 065
     Dates: start: 20230127

REACTIONS (1)
  - Pneumonia [Recovered/Resolved]

NARRATIVE: CASE EVENT DATE: 20230127
